FAERS Safety Report 17753469 (Version 1)
Quarter: 2020Q2

REPORT INFORMATION
  Report Type: Spontaneous
  Country: AU (occurrence: AU)
  Receive Date: 20200506
  Receipt Date: 20200506
  Transmission Date: 20200714
  Serious: Yes (Other)
  Sender: FDA-Public Use
  Company Number: AU-JNJFOC-20200502627

PATIENT
  Age: 66 Year
  Sex: Male

DRUGS (2)
  1. RIVAROXABAN [Suspect]
     Active Substance: RIVAROXABAN
     Indication: DEEP VEIN THROMBOSIS
     Dosage: 15 MG
     Route: 048
     Dates: start: 20200110, end: 202001
  2. RIVAROXABAN [Suspect]
     Active Substance: RIVAROXABAN
     Route: 048
     Dates: start: 202001

REACTIONS (4)
  - Presyncope [Not Recovered/Not Resolved]
  - Sinus node dysfunction [Not Recovered/Not Resolved]
  - Dizziness [Not Recovered/Not Resolved]
  - Bradycardia [Not Recovered/Not Resolved]

NARRATIVE: CASE EVENT DATE: 2020
